FAERS Safety Report 6805821-3 (Version None)
Quarter: 2010Q2

REPORT INFORMATION
  Report Type: 
  Country: None (occurrence: None)
  Receive Date: 20100629
  Receipt Date: 20081031
  Transmission Date: 20101027
  Serious: No
  Sender: FDA-Public Use
  Company Number: US-PFIZER INC-2005091095

PATIENT
  Sex: Male
  Weight: 92.99 kg

DRUGS (4)
  1. VIAGRA [Suspect]
     Indication: ERECTILE DYSFUNCTION
     Route: 048
  2. CIALIS [Suspect]
  3. LISINOPRIL AND HYDROCHLOROTHIAZIDE [Concomitant]
     Route: 065
  4. GLIPIZIDE [Concomitant]
     Route: 065

REACTIONS (6)
  - DRUG INEFFECTIVE [None]
  - ERECTILE DYSFUNCTION [None]
  - INTENTIONAL DRUG MISUSE [None]
  - NASAL CONGESTION [None]
  - VISUAL BRIGHTNESS [None]
  - VISUAL IMPAIRMENT [None]
